APPROVED DRUG PRODUCT: AZELASTINE HYDROCHLORIDE
Active Ingredient: AZELASTINE HYDROCHLORIDE
Strength: 0.137MG/SPRAY
Dosage Form/Route: SPRAY, METERED;NASAL
Application: A077954 | Product #001 | TE Code: AB
Applicant: APOTEX INC
Approved: Apr 30, 2009 | RLD: No | RS: Yes | Type: RX